FAERS Safety Report 15366615 (Version 3)
Quarter: 2018Q4

REPORT INFORMATION
  Report Type: Spontaneous
  Country: US (occurrence: US)
  Receive Date: 20180910
  Receipt Date: 20181119
  Transmission Date: 20190204
  Serious: No
  Sender: FDA-Public Use
  Company Number: US-GLAXOSMITHKLINE-US2018156179

PATIENT
  Age: 51 Year
  Sex: Female

DRUGS (1)
  1. FLOVENT [Suspect]
     Active Substance: FLUTICASONE PROPIONATE
     Indication: PRODUCT USED FOR UNKNOWN INDICATION
     Dosage: 2 PUFF(S), BID
     Route: 055

REACTIONS (14)
  - Sinusitis [Unknown]
  - Hyperhidrosis [Unknown]
  - Supraventricular tachycardia [Unknown]
  - Bronchitis [Unknown]
  - Dehydration [Unknown]
  - X-ray [Unknown]
  - Cough [Unknown]
  - Eye swelling [Unknown]
  - Tonsillitis [Unknown]
  - Pain [Unknown]
  - Blood test [Unknown]
  - Ocular hyperaemia [Unknown]
  - Heart rate increased [Unknown]
  - Nausea [Unknown]

NARRATIVE: CASE EVENT DATE: 201711
